FAERS Safety Report 14311357 (Version 2)
Quarter: 2018Q4

REPORT INFORMATION
  Report Type: Spontaneous
  Country: US (occurrence: US)
  Receive Date: 20171221
  Receipt Date: 20181217
  Transmission Date: 20190204
  Serious: Yes (Other)
  Sender: FDA-Public Use
  Company Number: US-NOVEN PHARMACEUTICALS, INC.-US2017000967

PATIENT

DRUGS (2)
  1. MINIVELLE [Suspect]
     Active Substance: ESTRADIOL
     Indication: INFERTILITY
     Dosage: 0.2 MG (USING 2 PATCHES OF 0.1 MG EVERY 3 DAYS)
     Route: 062
  2. CRINONE [Concomitant]
     Active Substance: PROGESTERONE

REACTIONS (6)
  - Product prescribing error [Not Recovered/Not Resolved]
  - Off label use [Unknown]
  - Prescribed overdose [Not Recovered/Not Resolved]
  - Wrong technique in product usage process [Not Recovered/Not Resolved]
  - No adverse event [Unknown]
  - Maternal exposure during pregnancy [Not Recovered/Not Resolved]
